FAERS Safety Report 8063697-3 (Version None)
Quarter: 2011Q4

REPORT INFORMATION
  Report Type: 
  Country: None (occurrence: None)
  Receive Date: 20111220
  Receipt Date: 20111019
  Transmission Date: 20120403
  Serious: Yes (Other)
  Sender: FDA-Public Use
  Company Number: 2009009268

PATIENT
  Sex: Female

DRUGS (2)
  1. ACTIQ [Suspect]
     Indication: MIGRAINE
     Dosage: 600 MCG (600 MCG, 1 IN 1 D), BU
     Route: 002
  2. LOROCET /00607101/ [Concomitant]

REACTIONS (4)
  - VOMITING [None]
  - DRUG PRESCRIBING ERROR [None]
  - DENTAL CARIES [None]
  - MATERNAL EXPOSURE DURING PREGNANCY [None]
